FAERS Safety Report 19511602 (Version 1)
Quarter: 2021Q3

REPORT INFORMATION
  Report Type: Spontaneous
  Country: ES (occurrence: ES)
  Receive Date: 20210709
  Receipt Date: 20210709
  Transmission Date: 20211014
  Serious: Yes (Other)
  Sender: FDA-Public Use
  Company Number: ES-REGENERON PHARMACEUTICALS, INC.-2021-46719

PATIENT

DRUGS (3)
  1. EYLEA [Suspect]
     Active Substance: AFLIBERCEPT
     Indication: MACULAR OEDEMA
     Dosage: 5 DOES OF EYLEA IN RIGHT EYE
     Dates: start: 2019
  2. EYLEA [Suspect]
     Active Substance: AFLIBERCEPT
     Dosage: UNK, 10 DOSES OF EYLEA IN TOTAL
     Dates: start: 2020
  3. OZURDEX [Concomitant]
     Active Substance: DEXAMETHASONE
     Indication: PRODUCT USED FOR UNKNOWN INDICATION
     Dosage: 3 DOSES

REACTIONS (10)
  - Cataract operation [Unknown]
  - Retinal exudates [Unknown]
  - Retinal vein occlusion [Unknown]
  - Retinal disorder [Unknown]
  - Therapeutic product ineffective [Unknown]
  - Macular oedema [Unknown]
  - Retinal ischaemia [Unknown]
  - Retinal cyst [Unknown]
  - Blindness [Unknown]
  - Subretinal fluid [Unknown]

NARRATIVE: CASE EVENT DATE: 2019
